FAERS Safety Report 5200915-0 (Version None)
Quarter: 2007Q1

REPORT INFORMATION
  Report Type: 
  Country: None (occurrence: None)
  Receive Date: 20070108
  Receipt Date: 20061226
  Transmission Date: 20070707
  Serious: Yes (Other)
  Sender: FDA-Public Use
  Company Number: FR-BRISTOL-MYERS SQUIBB COMPANY-13624416

PATIENT
  Age: 66 Year
  Sex: Male

DRUGS (4)
  1. CETUXIMAB [Suspect]
     Indication: COLORECTAL CANCER
  2. FLUOROURACIL [Concomitant]
     Indication: COLORECTAL CANCER
  3. FOLINIC ACID [Concomitant]
     Indication: COLORECTAL CANCER
  4. IRINOTECAN [Concomitant]
     Indication: COLORECTAL CANCER

REACTIONS (4)
  - ABNORMAL BEHAVIOUR [None]
  - HYPOCALCAEMIA [None]
  - HYPOMAGNESAEMIA [None]
  - HYPOPHOSPHATAEMIA [None]
